FAERS Safety Report 18450298 (Version 1)
Quarter: 2020Q4

REPORT INFORMATION
  Report Type: Spontaneous
  Country: US (occurrence: US)
  Receive Date: 20201031
  Receipt Date: 20201031
  Transmission Date: 20210114
  Serious: Yes (Other)
  Sender: FDA-Public Use
  Company Number: US-PURDUE PHARMA-USA-2020-0153260

PATIENT
  Sex: Male

DRUGS (6)
  1. OXYCONTIN [Suspect]
     Active Substance: OXYCODONE HYDROCHLORIDE
     Indication: PAIN
     Dosage: (10MG) 1 TABLET, Q4H
     Route: 048
     Dates: start: 2011, end: 2017
  2. OXYCONTIN [Suspect]
     Active Substance: OXYCODONE HYDROCHLORIDE
     Indication: AFFECT LABILITY
  3. TRAMADOL. [Suspect]
     Active Substance: TRAMADOL
     Indication: AFFECT LABILITY
  4. PERCOCET                           /00446701/ [Suspect]
     Active Substance: ACETAMINOPHEN\OXYCODONE HYDROCHLORIDE\OXYCODONE TEREPHTHALATE
     Indication: PAIN
     Dosage: (10MG) 1 TABLET, PRN (AS NEEDED, NOT TO EXCEED 6/DAY)
     Route: 048
     Dates: start: 2011, end: 2017
  5. PERCOCET                           /00446701/ [Suspect]
     Active Substance: ACETAMINOPHEN\OXYCODONE HYDROCHLORIDE\OXYCODONE TEREPHTHALATE
     Indication: AFFECT LABILITY
     Dosage: (20MG) 1 TABLET, PRN (AS NEEDED, NOT TO EXCEED 6/DAY)
     Route: 048
     Dates: start: 2011, end: 2017
  6. TRAMADOL. [Suspect]
     Active Substance: TRAMADOL
     Indication: PAIN
     Dosage: UNK
     Route: 048
     Dates: start: 2011, end: 2017

REACTIONS (2)
  - Drug abuse [Unknown]
  - Drug dependence [Unknown]

NARRATIVE: CASE EVENT DATE: 2011
